FAERS Safety Report 7596595-X (Version None)
Quarter: 2011Q3

REPORT INFORMATION
  Report Type: 
  Country: None (occurrence: None)
  Receive Date: 20110708
  Receipt Date: 20110624
  Transmission Date: 20111222
  Serious: Yes (Hospitalization, Other)
  Sender: FDA-Public Use
  Company Number: US-RANBAXY-2011US-45663

PATIENT
  Age: 55 Year
  Sex: Female

DRUGS (2)
  1. VERAPAMIL [Suspect]
     Indication: PRODUCT USED FOR UNKNOWN INDICATION
     Dosage: 40 MG, 30 TABLETS
     Route: 065
  2. METOPROLOL TARTRATE [Suspect]
     Indication: PRODUCT USED FOR UNKNOWN INDICATION
     Dosage: 50 MG, 30 TABLETS
     Route: 048

REACTIONS (6)
  - INTENTIONAL OVERDOSE [None]
  - OPTIC ISCHAEMIC NEUROPATHY [None]
  - HYPOTENSION [None]
  - BRADYCARDIA [None]
  - ATRIOVENTRICULAR BLOCK [None]
  - SUICIDE ATTEMPT [None]
